FAERS Safety Report 7428817-X (Version None)
Quarter: 2011Q2

REPORT INFORMATION
  Report Type: 
  Country: None (occurrence: None)
  Receive Date: 20110421
  Receipt Date: 20110418
  Transmission Date: 20111010
  Serious: Yes (Death)
  Sender: FDA-Public Use
  Company Number: US-PFIZER INC-2011056957

PATIENT
  Sex: Male

DRUGS (1)
  1. EFFEXOR XR [Suspect]
     Indication: NERVOUSNESS
     Dosage: UNK
     Route: 048

REACTIONS (5)
  - SEASONAL ALLERGY [None]
  - PNEUMONIA [None]
  - MALNUTRITION [None]
  - DIABETES MELLITUS [None]
  - ASPIRATION [None]
